FAERS Safety Report 17435920 (Version 1)
Quarter: 2020Q1

REPORT INFORMATION
  Report Type: Spontaneous
  Country: JP (occurrence: JP)
  Receive Date: 20200219
  Receipt Date: 20200219
  Transmission Date: 20200409
  Serious: Yes (Hospitalization, Other)
  Sender: FDA-Public Use
  Company Number: JP-GILEAD-2020-0451190

PATIENT
  Age: 42 Year
  Sex: Male

DRUGS (5)
  1. FUROSEMIDE. [Concomitant]
     Active Substance: FUROSEMIDE
     Indication: ASCITES
     Dosage: 20 MG
     Route: 048
  2. TOLVAPTAN [Concomitant]
     Active Substance: TOLVAPTAN
     Indication: ASCITES
     Dosage: 7.5 MG
     Route: 048
  3. ALDACTONE A [Concomitant]
     Active Substance: SPIRONOLACTONE
     Indication: ASCITES
     Dosage: 50 MG
     Route: 048
  4. VEMLIDY [Suspect]
     Active Substance: TENOFOVIR ALAFENAMIDE FUMARATE
     Indication: HEPATITIS B
     Dosage: 25 MG
     Route: 048
  5. VEMLIDY [Suspect]
     Active Substance: TENOFOVIR ALAFENAMIDE FUMARATE
     Indication: HEPATIC CIRRHOSIS

REACTIONS (3)
  - Peritonitis bacterial [Unknown]
  - Hepatocellular carcinoma [Recovered/Resolved]
  - Blood bilirubin increased [Recovered/Resolved]
